FAERS Safety Report 14964124 (Version 1)
Quarter: 2018Q2

REPORT INFORMATION
  Report Type: Spontaneous
  Country: NL (occurrence: NL)
  Receive Date: 20180601
  Receipt Date: 20180601
  Transmission Date: 20180711
  Serious: Yes (Death)
  Sender: FDA-Public Use
  Company Number: NL-NAPPMUNDI-GBR-2018-0056185

PATIENT
  Sex: Female

DRUGS (2)
  1. MORPHINE SULFATE. [Suspect]
     Active Substance: MORPHINE SULFATE
     Indication: PALLIATIVE CARE
     Route: 065
  2. DORMICUM                           /00634103/ [Suspect]
     Active Substance: MIDAZOLAM HYDROCHLORIDE
     Indication: PALLIATIVE CARE
     Route: 065

REACTIONS (3)
  - Death [Fatal]
  - Intentional product use issue [Fatal]
  - Off label use [Fatal]

NARRATIVE: CASE EVENT DATE: 20180209
